FAERS Safety Report 4753099-7 (Version None)
Quarter: 2005Q3

REPORT INFORMATION
  Report Type: 
  Country: None (occurrence: None)
  Receive Date: 20050826
  Receipt Date: 20050314
  Transmission Date: 20060218
  Serious: Yes (Other)
  Sender: FDA-Public Use
  Company Number: US-MERCK-0503USA02889

PATIENT
  Age: 59 Year
  Sex: Male
  Weight: 125 kg

DRUGS (15)
  1. ATACAND [Concomitant]
     Indication: BLOOD PRESSURE
     Route: 065
     Dates: start: 19990101
  2. LASIX [Concomitant]
     Route: 065
     Dates: start: 20010101
  3. METOLAZONE [Concomitant]
     Route: 065
     Dates: start: 19990101
  4. TIAZAC [Concomitant]
     Indication: BLOOD PRESSURE
     Route: 065
     Dates: start: 19990101
  5. IBUPROFEN [Concomitant]
     Indication: ARTHRALGIA
     Route: 065
     Dates: start: 20030101
  6. NEURONTIN [Concomitant]
     Indication: PAIN
     Route: 065
     Dates: start: 19990101
  7. ALLOPURINOL [Concomitant]
     Indication: GOUT
     Route: 065
     Dates: start: 19990101
  8. SYNTHROID [Concomitant]
     Indication: THYROID DISORDER
     Route: 065
     Dates: start: 20000101
  9. INSULIN [Concomitant]
     Indication: DIABETES MELLITUS
     Route: 065
     Dates: start: 20000101
  10. CARDURA [Concomitant]
     Indication: BLOOD PRESSURE
     Route: 065
     Dates: start: 20010101
  11. LIPITOR [Concomitant]
     Route: 065
  12. VIOXX [Suspect]
     Indication: ARTHRALGIA
     Route: 048
     Dates: start: 20030801, end: 20040601
  13. ACCUPRIL [Concomitant]
     Indication: BLOOD PRESSURE
     Route: 065
     Dates: start: 19980101
  14. ACTOS [Concomitant]
     Indication: DIABETES MELLITUS
     Route: 065
     Dates: start: 20000101
  15. AMARYL [Concomitant]
     Indication: DIABETES MELLITUS
     Route: 065
     Dates: start: 20000101

REACTIONS (4)
  - CONDITION AGGRAVATED [None]
  - HYPERTENSION [None]
  - MYOCARDIAL INFARCTION [None]
  - NAUSEA [None]
